FAERS Safety Report 13400433 (Version 1)
Quarter: 2017Q2

REPORT INFORMATION
  Report Type: Report from Study
  Country: US (occurrence: US)
  Receive Date: 20170404
  Receipt Date: 20170404
  Transmission Date: 20170830
  Serious: Yes (Other)
  Sender: FDA-Public Use
  Company Number: US-CIPLA LTD.-2017US05122

PATIENT

DRUGS (6)
  1. VINCRISTINE [Suspect]
     Active Substance: VINCRISTINE
     Dosage: 1.5 MG/M2, WEEK 0 TO 4 FOR SIX 10-WEEK MAINTENANCE CYCLES
     Route: 065
  2. TEMOZOLOMIDE. [Suspect]
     Active Substance: TEMOZOLOMIDE
     Dosage: 200 MG/M2/D FOR 5 DAYS, FOR SIX 10-WEEK MAINTENANCE CYCLES
     Route: 065
  3. TEMOZOLOMIDE. [Suspect]
     Active Substance: TEMOZOLOMIDE
     Indication: GLIOMA
     Dosage: 200 MG/M2/D FOR 5 DAYS (INDUCTION DOSE)
     Route: 065
  4. CARBOPLATIN. [Suspect]
     Active Substance: CARBOPLATIN
     Indication: GLIOMA
     Dosage: 175 MG/M2, WEEK 0 TO 3 (INDUCTION DOSE)
     Route: 065
  5. VINCRISTINE [Suspect]
     Active Substance: VINCRISTINE
     Indication: GLIOMA
     Dosage: 1.5 MG/M2, WEEK 0 TO 3, 4, 5 (INDUCTION DOSE)
     Route: 065
  6. CARBOPLATIN. [Suspect]
     Active Substance: CARBOPLATIN
     Dosage: 175 MG/M2, WEEK 0 TO 3 FOR SIX 10-WEEK MAINTENANCE CYCLES
     Route: 065

REACTIONS (1)
  - Disease progression [Unknown]
